FAERS Safety Report 6705240-4 (Version None)
Quarter: 2010Q2

REPORT INFORMATION
  Report Type: 
  Country: None (occurrence: None)
  Receive Date: 20100430
  Receipt Date: 20100422
  Transmission Date: 20101027
  Serious: Yes (Hospitalization, Other)
  Sender: FDA-Public Use
  Company Number: FR-ABBOTT-10P-056-0640046-00

PATIENT
  Sex: Male

DRUGS (5)
  1. TARKA [Suspect]
     Indication: DRUG USE FOR UNKNOWN INDICATION
     Route: 048
     Dates: end: 20090927
  2. INEGY [Suspect]
     Indication: DRUG USE FOR UNKNOWN INDICATION
     Route: 048
     Dates: end: 20090927
  3. FLAGYL [Suspect]
     Indication: DRUG USE FOR UNKNOWN INDICATION
     Route: 042
     Dates: start: 20090929, end: 20090930
  4. HEPARIN [Suspect]
     Indication: MYOCARDIAL ISCHAEMIA
     Route: 042
     Dates: start: 20090928, end: 20090930
  5. HEPARIN [Suspect]
     Indication: ACUTE PULMONARY OEDEMA

REACTIONS (5)
  - ACUTE PULMONARY OEDEMA [None]
  - ACUTE RESPIRATORY DISTRESS SYNDROME [None]
  - ATRIAL FIBRILLATION [None]
  - HYPOVOLAEMIC SHOCK [None]
  - THROMBOCYTOPENIA [None]
